FAERS Safety Report 4837855-2 (Version None)
Quarter: 2005Q4

REPORT INFORMATION
  Report Type: 
  Country: None (occurrence: None)
  Receive Date: 20051128
  Receipt Date: 20051116
  Transmission Date: 20060501
  Serious: Yes (Hospitalization)
  Sender: FDA-Public Use
  Company Number: US-MERCK-0511USA03199

PATIENT
  Age: 71 Year
  Sex: Female
  Weight: 79 kg

DRUGS (12)
  1. VIOXX [Suspect]
     Indication: ARTHRITIS
     Route: 048
     Dates: start: 20010111, end: 20040924
  2. ZETIA [Concomitant]
     Route: 065
  3. PROTONIX [Concomitant]
     Route: 065
  4. ZYPREXA [Concomitant]
     Route: 065
  5. LIPITOR [Concomitant]
     Route: 065
  6. LORAZEPAM [Concomitant]
     Route: 065
  7. TRAMADOL HYDROCHLORIDE [Concomitant]
     Route: 065
  8. AMBIEN [Concomitant]
     Route: 065
  9. EVISTA [Concomitant]
     Route: 065
  10. ACCUPRIL [Concomitant]
     Route: 065
  11. LANTUS [Concomitant]
     Route: 065
  12. TAMOXIFEN CITRATE [Concomitant]
     Route: 065

REACTIONS (12)
  - BACK PAIN [None]
  - CARDIAC DISORDER [None]
  - CEREBROVASCULAR ACCIDENT [None]
  - DIABETES MELLITUS NON-INSULIN-DEPENDENT [None]
  - NERVOUSNESS [None]
  - NEUROPATHY PERIPHERAL [None]
  - PALPITATIONS [None]
  - RHINITIS ALLERGIC [None]
  - SINUS TACHYCARDIA [None]
  - SINUSITIS [None]
  - UPPER RESPIRATORY TRACT INFECTION [None]
  - URINARY TRACT INFECTION [None]
